FAERS Safety Report 6811441-7 (Version None)
Quarter: 2010Q2

REPORT INFORMATION
  Report Type: 
  Country: None (occurrence: None)
  Receive Date: 20100629
  Receipt Date: 20100629
  Transmission Date: 20101027
  Serious: No
  Sender: FDA-Public Use
  Company Number: None

PATIENT
  Age: 76 Year
  Sex: Male
  Weight: 76.2043 kg

DRUGS (2)
  1. AMOXICILLIN AND CLAVULANATE POTASSIUM [Suspect]
     Indication: COUGH
     Dosage: 500-125MG TAB 3 PER DAY MOUTH
     Dates: start: 20100419, end: 20100427
  2. AMOXICILLIN AND CLAVULANATE POTASSIUM [Suspect]
     Indication: SINUSITIS
     Dosage: 500-125MG TAB 3 PER DAY MOUTH
     Dates: start: 20100419, end: 20100427

REACTIONS (12)
  - ABDOMINAL PAIN UPPER [None]
  - APHONIA [None]
  - ASTHENIA [None]
  - CONSTIPATION [None]
  - DECREASED APPETITE [None]
  - DEHYDRATION [None]
  - DIARRHOEA [None]
  - FAECES DISCOLOURED [None]
  - FALL [None]
  - FLATULENCE [None]
  - SYNCOPE [None]
  - WEIGHT DECREASED [None]
